FAERS Safety Report 9353573 (Version 1)
Quarter: 2013Q2

REPORT INFORMATION
  Report Type: Spontaneous
  Country: AT (occurrence: AT)
  Receive Date: 20130618
  Receipt Date: 20130618
  Transmission Date: 20140414
  Serious: Yes (Other)
  Sender: FDA-Public Use
  Company Number: AT-PFIZER INC-2013180391

PATIENT
  Sex: Female

DRUGS (1)
  1. DEPOCON [Suspect]

REACTIONS (1)
  - Haemorrhage [Unknown]
